FAERS Safety Report 7754347-1 (Version None)
Quarter: 2011Q3

REPORT INFORMATION
  Report Type: 
  Country: None (occurrence: None)
  Receive Date: 20110915
  Receipt Date: 20110912
  Transmission Date: 20111222
  Serious: Yes (Life-Threatening)
  Sender: FDA-Public Use
  Company Number: PHHY2011IT81264

PATIENT
  Sex: Female

DRUGS (2)
  1. TRASTUZUMAB [Concomitant]
  2. PACLITAXEL [Suspect]
     Indication: BREAST CANCER METASTATIC
     Dosage: 130 MG, UNK
     Route: 042
     Dates: start: 20110902, end: 20110902

REACTIONS (2)
  - DYSPNOEA [None]
  - BRONCHOSPASM [None]
